FAERS Safety Report 9990189 (Version 1)
Quarter: 2014Q1

REPORT INFORMATION
  Report Type: Report from Study
  Country: US (occurrence: US)
  Receive Date: 20140310
  Receipt Date: 20140310
  Transmission Date: 20141002
  Serious: No
  Sender: FDA-Public Use
  Company Number: US-ABBVIE-13P-163-1130670-00

PATIENT
  Age: 24 Year
  Sex: Male

DRUGS (3)
  1. HUMIRA [Suspect]
     Indication: COLITIS ULCERATIVE
     Dosage: 160 MG LOADING DOSE
     Dates: start: 201304, end: 201304
  2. HUMIRA [Suspect]
     Dosage: 80 MG OF UNIT DOSE, 2 WEEKS AFTER INITIAL DOSE
     Dates: start: 201304, end: 201304
  3. HUMIRA [Suspect]
     Dosage: 4 WEEKS AFTER INITIAL DOSE
     Dates: start: 201305, end: 201307

REACTIONS (1)
  - Rash [Recovered/Resolved]
